FAERS Safety Report 11169746 (Version 2)
Quarter: 2015Q4

REPORT INFORMATION
  Report Type: Spontaneous
  Country: BR (occurrence: BR)
  Receive Date: 20150606
  Receipt Date: 20151013
  Transmission Date: 20160304
  Serious: Yes (Other)
  Sender: FDA-Public Use
  Company Number: BR-SUN PHARMACEUTICAL INDUSTRIES LTD-2015R5-98188

PATIENT
  Age: 76 Year
  Sex: Female
  Weight: 94 kg

DRUGS (15)
  1. EZOBLOC [Suspect]
     Active Substance: ESOMEPRAZOLE
     Indication: OESOPHAGEAL ULCER
  2. EZOBLOC [Suspect]
     Active Substance: ESOMEPRAZOLE
     Indication: GASTROOESOPHAGEAL REFLUX DISEASE
  3. EZOBLOC [Suspect]
     Active Substance: ESOMEPRAZOLE
     Indication: HIATUS HERNIA
  4. EZOBLOC [Suspect]
     Active Substance: ESOMEPRAZOLE
     Indication: GASTRITIS EROSIVE
     Dosage: 40 MG, QD
     Route: 048
     Dates: start: 201411
  5. EZOBLOC [Suspect]
     Active Substance: ESOMEPRAZOLE
     Indication: GASTRIC ULCER
  6. EZOBLOC [Suspect]
     Active Substance: ESOMEPRAZOLE
     Indication: HIATUS HERNIA
  7. EZOBLOC [Suspect]
     Active Substance: ESOMEPRAZOLE
     Indication: GASTRITIS EROSIVE
     Dosage: 20 MG, QD
     Route: 048
     Dates: end: 20150504
  8. EZOBLOC [Suspect]
     Active Substance: ESOMEPRAZOLE
     Indication: GASTRIC ULCER
  9. INDAPAMIDE. [Concomitant]
     Active Substance: INDAPAMIDE
     Indication: PRODUCT USED FOR UNKNOWN INDICATION
     Dosage: 1.5 DF, QD
     Route: 048
  10. EZOBLOC [Suspect]
     Active Substance: ESOMEPRAZOLE
     Indication: DUODENAL ULCER
  11. EZOBLOC [Suspect]
     Active Substance: ESOMEPRAZOLE
     Indication: GASTROOESOPHAGEAL REFLUX DISEASE
  12. VITAMIN D [Concomitant]
     Active Substance: CHOLECALCIFEROL
     Indication: PRODUCT USED FOR UNKNOWN INDICATION
     Dosage: UNK
     Route: 065
  13. EZOBLOC [Suspect]
     Active Substance: ESOMEPRAZOLE
     Indication: OESOPHAGEAL ULCER
  14. EZOBLOC [Suspect]
     Active Substance: ESOMEPRAZOLE
     Indication: DUODENAL ULCER
  15. CALCIUM [Concomitant]
     Active Substance: CALCIUM
     Indication: PRODUCT USED FOR UNKNOWN INDICATION
     Dosage: UNK
     Route: 065

REACTIONS (6)
  - Dermatitis [Recovering/Resolving]
  - Rash papular [Not Recovered/Not Resolved]
  - Skin reaction [Recovering/Resolving]
  - Irritable bowel syndrome [Recovering/Resolving]
  - Rash [Recovering/Resolving]
  - Pruritus [Recovering/Resolving]

NARRATIVE: CASE EVENT DATE: 20150521
